FAERS Safety Report 5864423-6 (Version None)
Quarter: 2008Q3

REPORT INFORMATION
  Report Type: 
  Country: None (occurrence: None)
  Receive Date: 20080829
  Receipt Date: 20080701
  Transmission Date: 20090109
  Serious: No
  Sender: FDA-Public Use
  Company Number: US-ABBOTT-08P-163-0460281-00

PATIENT
  Sex: Female

DRUGS (2)
  1. SIMCOR [Suspect]
     Indication: DRUG USE FOR UNKNOWN INDICATION
     Dosage: 1000 MG / 20 MG
     Route: 048
  2. SIMCOR [Suspect]
     Dosage: 1000 MG / 20 MG
     Route: 048

REACTIONS (2)
  - ABDOMINAL DISTENSION [None]
  - FAECAL INCONTINENCE [None]
